FAERS Safety Report 6529020-8 (Version None)
Quarter: 2009Q4

REPORT INFORMATION
  Report Type: 
  Country: None (occurrence: None)
  Receive Date: 20091229
  Receipt Date: 20091120
  Transmission Date: 20100525
  Serious: Yes (Hospitalization)
  Sender: FDA-Public Use
  Company Number: PL-EBEWE-0899MTX09

PATIENT
  Age: 62 Year
  Sex: Female
  Weight: 82 kg

DRUGS (11)
  1. METHOTREXATE [Suspect]
     Indication: RHEUMATOID ARTHRITIS
     Dosage: 10 MG, ONCE, IM
     Route: 030
     Dates: start: 20090521, end: 20090521
  2. METHYLPREDNISOLONE 4MG TAB [Concomitant]
  3. DICLOFENAC [Concomitant]
  4. FOLIC ACID [Concomitant]
  5. PANTOPRAZOLE [Concomitant]
  6. CLONAZEPAM [Concomitant]
  7. TIANEPTINE [Concomitant]
  8. BISOPROLOL FUMARATE [Concomitant]
  9. AMILORIDE HCL AND HYDROCHLOROTHIAZIDE [Concomitant]
  10. SIMVASTATIN [Concomitant]
  11. ACETYSALICYLIC ACID [Concomitant]

REACTIONS (5)
  - ABDOMINAL PAIN [None]
  - DECREASED APPETITE [None]
  - DIZZINESS [None]
  - MALAISE [None]
  - NAUSEA [None]
